FAERS Safety Report 8500597-6 (Version None)
Quarter: 2012Q3

REPORT INFORMATION
  Report Type: 
  Country: None (occurrence: None)
  Receive Date: 20120710
  Receipt Date: 20120629
  Transmission Date: 20120928
  Serious: Yes (Hospitalization)
  Sender: FDA-Public Use
  Company Number: JP-VERTEX PHARMACEUTICALS INC.-AE-2012-009794

PATIENT
  Age: 64 Year
  Sex: Male

DRUGS (12)
  1. TAMSULOSIN HCL [Concomitant]
     Route: 048
  2. URSO 250 [Concomitant]
     Route: 048
  3. REBETOL [Concomitant]
     Indication: HEPATITIS C
     Route: 048
     Dates: start: 20120508, end: 20120517
  4. REBETOL [Concomitant]
     Route: 048
     Dates: start: 20120611
  5. DOGMATYL [Concomitant]
  6. REBETOL [Concomitant]
     Route: 048
     Dates: start: 20120518, end: 20120529
  7. ARTANE [Concomitant]
     Route: 048
  8. TELAVIC (TELAPREVIR) [Suspect]
     Indication: HEPATITIS C
     Route: 048
     Dates: start: 20120508, end: 20120529
  9. REBETOL [Concomitant]
     Route: 048
     Dates: start: 20120605, end: 20120610
  10. TELAVIC (TELAPREVIR) [Suspect]
     Route: 048
     Dates: start: 20120605
  11. PEG-INTRON [Concomitant]
     Indication: HEPATITIS C
     Route: 058
     Dates: start: 20120508
  12. PARKINES [Concomitant]
     Route: 048

REACTIONS (1)
  - DECREASED APPETITE [None]
